FAERS Safety Report 9050746 (Version 1)
Quarter: 2013Q1

REPORT INFORMATION
  Report Type: Spontaneous
  Country: US (occurrence: US)
  Receive Date: 20130205
  Receipt Date: 20130205
  Transmission Date: 20140127
  Serious: No
  Sender: FDA-Public Use
  Company Number: US-ROXANE LABORATORIES, INC.-2013-RO-00213RO

PATIENT
  Age: 43 Year
  Sex: Female

DRUGS (1)
  1. FLUTICASONE [Suspect]
     Indication: SINUS DISORDER
     Route: 055
     Dates: start: 201301, end: 201301

REACTIONS (1)
  - Nausea [Recovered/Resolved]
